FAERS Safety Report 13899095 (Version 1)
Quarter: 2017Q3

REPORT INFORMATION
  Report Type: Spontaneous
  Country: US (occurrence: US)
  Receive Date: 20170824
  Receipt Date: 20170824
  Transmission Date: 20171127
  Serious: No
  Sender: FDA-Public Use
  Company Number: US-BAYER-2017-162096

PATIENT
  Age: 54 Year
  Sex: Female
  Weight: 86 kg

DRUGS (3)
  1. CLARITIN [Suspect]
     Active Substance: LORATADINE
     Indication: HYPERSENSITIVITY
     Dosage: UNK, 1 CAPFUL TABLESPOON
     Route: 047
     Dates: end: 20170722
  2. CLARITIN [Suspect]
     Active Substance: LORATADINE
     Indication: NASOPHARYNGITIS
  3. FLONASE [Concomitant]
     Active Substance: FLUTICASONE PROPIONATE
     Dosage: UNK

REACTIONS (4)
  - Inappropriate prescribing [Unknown]
  - Fatigue [Unknown]
  - Product use in unapproved indication [Unknown]
  - Palpitations [Unknown]

NARRATIVE: CASE EVENT DATE: 201707
